FAERS Safety Report 19853439 (Version 2)
Quarter: 2021Q4

REPORT INFORMATION
  Report Type: Report from Study
  Country: BR (occurrence: BR)
  Receive Date: 20210919
  Receipt Date: 20211003
  Transmission Date: 20220303
  Serious: Yes (Other)
  Sender: FDA-Public Use
  Company Number: NVSC2021BR155336

PATIENT
  Age: 38 Year
  Sex: Female

DRUGS (6)
  1. COSENTYX [Suspect]
     Active Substance: SECUKINUMAB
     Indication: Psoriatic arthropathy
     Dosage: 300 MG (ATTACK DOSES)
     Route: 065
     Dates: start: 20210625
  2. COSENTYX [Suspect]
     Active Substance: SECUKINUMAB
     Indication: Psoriasis
     Dosage: 300 MG, QMO (LAST DOSE)
     Route: 065
     Dates: start: 20210823
  3. COSENTYX [Suspect]
     Active Substance: SECUKINUMAB
     Dosage: 2 DF
     Route: 058
     Dates: start: 20210625, end: 202108
  4. COSENTYX [Suspect]
     Active Substance: SECUKINUMAB
     Dosage: 2 DF, QMO
     Route: 058
     Dates: start: 20210823
  5. ACITRETIN [Concomitant]
     Active Substance: ACITRETIN
     Indication: Product used for unknown indication
     Dosage: UNK
     Route: 065
  6. CYCLOSPORINE [Concomitant]
     Active Substance: CYCLOSPORINE
     Indication: Psoriatic arthropathy
     Dosage: UNK (STARTED 14 YEARS AGO)
     Route: 065

REACTIONS (36)
  - Psoriatic arthropathy [Unknown]
  - Arthritis [Unknown]
  - Inflammatory pain [Unknown]
  - Sacral pain [Recovering/Resolving]
  - Dysstasia [Unknown]
  - Hypokinesia [Unknown]
  - Somnolence [Unknown]
  - Hypotension [Recovered/Resolved]
  - Fatigue [Recovered/Resolved]
  - Hypertension [Unknown]
  - Anxiety [Unknown]
  - Vertigo [Recovered/Resolved]
  - Neck pain [Recovering/Resolving]
  - Dysgraphia [Unknown]
  - Joint swelling [Unknown]
  - Depression [Unknown]
  - Sluggishness [Unknown]
  - Pain [Unknown]
  - Hand deformity [Recovering/Resolving]
  - Skin atrophy [Unknown]
  - Dizziness [Unknown]
  - Sleep disorder [Unknown]
  - Peripheral swelling [Unknown]
  - Ill-defined disorder [Unknown]
  - Rotator cuff syndrome [Unknown]
  - Skin exfoliation [Unknown]
  - Nerve injury [Unknown]
  - Adverse reaction [Unknown]
  - Hypersensitivity [Unknown]
  - Bone erosion [Unknown]
  - Finger deformity [Unknown]
  - Gait inability [Unknown]
  - Malaise [Unknown]
  - Nausea [Recovered/Resolved]
  - Salivary hypersecretion [Recovered/Resolved]
  - COVID-19 [Unknown]

NARRATIVE: CASE EVENT DATE: 20210101
